FAERS Safety Report 12841305 (Version 2)
Quarter: 2016Q4

REPORT INFORMATION
  Report Type: Spontaneous
  Country: US (occurrence: US)
  Receive Date: 20161012
  Receipt Date: 20161019
  Transmission Date: 20170207
  Serious: Yes (Other)
  Sender: FDA-Public Use
  Company Number: US-TEVA-701963USA

PATIENT
  Age: 69 Year
  Sex: Female

DRUGS (1)
  1. TRAZODONE [Suspect]
     Active Substance: TRAZODONE HYDROCHLORIDE
     Route: 065

REACTIONS (4)
  - Choking [Unknown]
  - Product quality issue [Unknown]
  - Product difficult to swallow [Unknown]
  - Retching [Unknown]
